FAERS Safety Report 5896740-8 (Version None)
Quarter: 2008Q3

REPORT INFORMATION
  Report Type: 
  Country: None (occurrence: None)
  Receive Date: 20080924
  Receipt Date: 20071025
  Transmission Date: 20090109
  Serious: Yes (Other)
  Sender: FDA-Public Use
  Company Number: US-ASTRAZENECA-2007UW24869

PATIENT
  Age: 5 Year
  Sex: Male

DRUGS (2)
  1. SEROQUEL [Suspect]
     Indication: ABNORMAL BEHAVIOUR
     Route: 048
  2. CONCERTA [Concomitant]
     Indication: ATTENTION DEFICIT/HYPERACTIVITY DISORDER

REACTIONS (1)
  - PRIAPISM [None]
